FAERS Safety Report 7639195-5 (Version None)
Quarter: 2011Q3

REPORT INFORMATION
  Report Type: 
  Country: None (occurrence: None)
  Receive Date: 20110727
  Receipt Date: 20110602
  Transmission Date: 20111222
  Serious: Yes (Death, Other)
  Sender: FDA-Public Use
  Company Number: PT-GENZYME-CAMP-1001656

PATIENT
  Sex: Female
  Weight: 68.5 kg

DRUGS (5)
  1. METHOTREXATE [Concomitant]
     Indication: PROPHYLAXIS AGAINST GRAFT VERSUS HOST DISEASE
     Dosage: UNK
     Route: 065
  2. CAMPATH [Suspect]
     Indication: TRANSPLANT
     Dosage: 20 MG, QD X 5 DAYS
     Route: 065
     Dates: start: 20080911, end: 20080915
  3. CAMPATH [Suspect]
     Indication: HODGKIN'S DISEASE
  4. CALCINEURIN INHIBITOR [Concomitant]
     Indication: PROPHYLAXIS AGAINST GRAFT VERSUS HOST DISEASE
     Dosage: UNK
     Route: 065
  5. MYCOPHENOLATE MOFETIL [Concomitant]
     Indication: PROPHYLAXIS AGAINST GRAFT VERSUS HOST DISEASE
     Dosage: UNK
     Route: 065

REACTIONS (3)
  - CYTOMEGALOVIRUS INFECTION [None]
  - HUMAN HERPESVIRUS 6 INFECTION [None]
  - MULTI-ORGAN FAILURE [None]
